FAERS Safety Report 7617839-1 (Version None)
Quarter: 2011Q3

REPORT INFORMATION
  Report Type: 
  Country: None (occurrence: None)
  Receive Date: 20110718
  Receipt Date: 20110713
  Transmission Date: 20111222
  Serious: No
  Sender: FDA-Public Use
  Company Number: US-TEVA-290646USA

PATIENT
  Sex: Female
  Weight: 43.13 kg

DRUGS (3)
  1. VICODIN [Concomitant]
     Indication: PAIN
  2. PLAN B ONE-STEP [Suspect]
     Indication: POST COITAL CONTRACEPTION
     Dosage: 1.5 MILLIGRAM;
     Route: 048
     Dates: start: 20110629, end: 20110629
  3. ADDERALL 10 [Concomitant]
     Indication: ATTENTION DEFICIT/HYPERACTIVITY DISORDER

REACTIONS (2)
  - DYSMENORRHOEA [None]
  - MENSTRUATION IRREGULAR [None]
